FAERS Safety Report 9299528 (Version 8)
Quarter: 2015Q1

REPORT INFORMATION
  Report Type: Spontaneous
  Country: CA (occurrence: CA)
  Receive Date: 20130521
  Receipt Date: 20150330
  Transmission Date: 20150721
  Serious: Yes (Hospitalization)
  Sender: FDA-Public Use
  Company Number: CA-ROCHE-1226476

PATIENT
  Age: 67 Year
  Sex: Male

DRUGS (3)
  1. XOLAIR [Suspect]
     Active Substance: OMALIZUMAB
     Route: 058
     Dates: start: 20141112
  2. XOLAIR [Suspect]
     Active Substance: OMALIZUMAB
     Indication: ASTHMA
     Route: 058
     Dates: start: 20111109
  3. FLU VACCINE [Concomitant]
     Active Substance: INFLUENZA VIRUS VACCINE

REACTIONS (9)
  - Blood pressure systolic increased [Unknown]
  - Secretion discharge [Unknown]
  - Bronchitis [Recovering/Resolving]
  - Sinusitis [Unknown]
  - Sciatica [Unknown]
  - Prostate infection [Unknown]
  - Stress [Unknown]
  - Influenza [Unknown]
  - Diarrhoea [Recovered/Resolved]

NARRATIVE: CASE EVENT DATE: 201205
